FAERS Safety Report 14515078 (Version 1)
Quarter: 2018Q1

REPORT INFORMATION
  Report Type: Spontaneous
  Country: JP (occurrence: JP)
  Receive Date: 20180209
  Receipt Date: 20180209
  Transmission Date: 20180509
  Serious: Yes (Death)
  Sender: FDA-Public Use
  Company Number: GXJP2018JP000612

PATIENT
  Age: 72 Year
  Sex: Male

DRUGS (2)
  1. PACLITAXEL. [Suspect]
     Active Substance: PACLITAXEL
     Indication: SQUAMOUS CELL CARCINOMA OF LUNG
     Dosage: UNK
     Route: 065
  2. CARBOPLATIN INTRAVENOUS INFUSION [Suspect]
     Active Substance: CARBOPLATIN
     Indication: SQUAMOUS CELL CARCINOMA OF LUNG
     Dosage: UNK
     Route: 041

REACTIONS (10)
  - White blood cell count decreased [Fatal]
  - Blood pressure decreased [Fatal]
  - Pyrexia [Fatal]
  - Aeromonas infection [Fatal]
  - Diarrhoea [Fatal]
  - Haemoptysis [Fatal]
  - Pneumonia [Fatal]
  - Dyspnoea [Fatal]
  - Sepsis [Fatal]
  - Back pain [Fatal]
